FAERS Safety Report 20446073 (Version 1)
Quarter: 2022Q1

REPORT INFORMATION
  Report Type: Spontaneous
  Country: US (occurrence: US)
  Receive Date: 20220208
  Receipt Date: 20220208
  Transmission Date: 20220423
  Serious: Yes (Other)
  Sender: FDA-Public Use
  Company Number: US-DSPHARMA-2022SUN000382

PATIENT
  Age: 60 Year
  Sex: Female

DRUGS (2)
  1. LATUDA [Suspect]
     Active Substance: LURASIDONE HYDROCHLORIDE
     Indication: Product used for unknown indication
     Dosage: 80 MG
     Route: 048
  2. AUSTEDO [Concomitant]
     Active Substance: DEUTETRABENAZINE
     Dosage: UNK

REACTIONS (4)
  - Tardive dyskinesia [Not Recovered/Not Resolved]
  - Tongue thrust [Not Recovered/Not Resolved]
  - Movement disorder [Not Recovered/Not Resolved]
  - Trismus [Not Recovered/Not Resolved]
